FAERS Safety Report 16577985 (Version 2)
Quarter: 2019Q3

REPORT INFORMATION
  Report Type: Spontaneous
  Country: US (occurrence: US)
  Receive Date: 20190716
  Receipt Date: 20190726
  Transmission Date: 20191004
  Serious: Yes (Other)
  Sender: FDA-Public Use
  Company Number: US-NEPHRON STERILE COMPOUNDING CENTER-2070858

PATIENT
  Age: 60 Year
  Sex: Female
  Weight: 93 kg

DRUGS (22)
  1. LIPITOR [Concomitant]
     Active Substance: ATORVASTATIN CALCIUM
     Route: 048
  2. ULORIC [Concomitant]
     Active Substance: FEBUXOSTAT
     Route: 048
  3. LIALDA [Concomitant]
     Active Substance: MESALAMINE
     Route: 048
  4. ELAVIL [Concomitant]
     Active Substance: AMITRIPTYLINE HYDROCHLORIDE
     Route: 048
  5. GLUCOTROL [Concomitant]
     Active Substance: GLIPIZIDE
     Route: 048
  6. SUCCINYLCHOLINE CHLORIDE. [Suspect]
     Active Substance: SUCCINYLCHOLINE CHLORIDE
     Indication: BRONCHOSCOPY
     Route: 040
     Dates: start: 20190710, end: 20190710
  7. LIDOCAINE. [Concomitant]
     Active Substance: LIDOCAINE
     Route: 040
  8. VALTREX [Concomitant]
     Active Substance: VALACYCLOVIR HYDROCHLORIDE
     Route: 048
  9. CHILDRENS ASPIRIN [Concomitant]
     Active Substance: ASPIRIN
     Route: 048
  10. TRULICITY [Concomitant]
     Active Substance: DULAGLUTIDE
     Route: 058
  11. LASIX [Concomitant]
     Active Substance: FUROSEMIDE
     Route: 048
  12. AMBIEN [Concomitant]
     Active Substance: ZOLPIDEM TARTRATE
     Route: 048
  13. TENORMIN [Concomitant]
     Active Substance: ATENOLOL
     Route: 048
  14. ZYRTEC [Concomitant]
     Active Substance: CETIRIZINE HYDROCHLORIDE
     Route: 048
  15. NEXIUM [Concomitant]
     Active Substance: ESOMEPRAZOLE MAGNESIUM
     Route: 048
  16. ROCURONIUM [Concomitant]
     Active Substance: ROCURONIUM BROMIDE
     Route: 040
  17. FENTANYL. [Concomitant]
     Active Substance: FENTANYL
     Route: 040
  18. ZOLOFT [Concomitant]
     Active Substance: SERTRALINE HYDROCHLORIDE
     Route: 048
  19. FLONASE [Concomitant]
     Active Substance: FLUTICASONE PROPIONATE
     Route: 045
  20. PROPOFOL. [Concomitant]
     Active Substance: PROPOFOL
     Route: 040
  21. CARAFATE [Concomitant]
     Active Substance: SUCRALFATE
     Route: 048
  22. LYRICA [Concomitant]
     Active Substance: PREGABALIN
     Route: 048

REACTIONS (1)
  - Drug ineffective [Recovered/Resolved]

NARRATIVE: CASE EVENT DATE: 20190710
